FAERS Safety Report 23099334 (Version 1)
Quarter: 2023Q4

REPORT INFORMATION
  Report Type: Report from Study
  Country: JP (occurrence: JP)
  Receive Date: 20231024
  Receipt Date: 20231024
  Transmission Date: 20240110
  Serious: Yes (Hospitalization)
  Sender: FDA-Public Use
  Company Number: JP-INSMED-2023-03979-JPAA

PATIENT
  Age: 72 Year
  Sex: Female

DRUGS (1)
  1. ARIKAYCE [Suspect]
     Active Substance: AMIKACIN
     Indication: Product used for unknown indication
     Dosage: UNK
     Route: 055
     Dates: start: 20230926, end: 20230927

REACTIONS (3)
  - Lung disorder [Unknown]
  - Incorrect product administration duration [Unknown]
  - Device use issue [Unknown]
